FAERS Safety Report 7212936-7 (Version None)
Quarter: 2010Q4

REPORT INFORMATION
  Report Type: 
  Country: None (occurrence: None)
  Receive Date: 20101229
  Receipt Date: 20101217
  Transmission Date: 20110411
  Serious: Yes (Other)
  Sender: FDA-Public Use
  Company Number: 024008

PATIENT
  Sex: Male
  Weight: 3.8 kg

DRUGS (1)
  1. KEPPRA [Suspect]
     Indication: MYOCLONIC EPILEPSY
     Dosage: (500 MG TRANSPLACENTAL)
     Route: 064
     Dates: start: 20061201

REACTIONS (5)
  - AMNIOCENTESIS ABNORMAL [None]
  - CAESAREAN SECTION [None]
  - DRUG EXPOSURE VIA BREAST MILK [None]
  - FOETAL DISTRESS SYNDROME [None]
  - MATERNAL DRUGS AFFECTING FOETUS [None]
